FAERS Safety Report 11516988 (Version 1)
Quarter: 2015Q3

REPORT INFORMATION
  Report Type: Report from Study
  Country: US (occurrence: US)
  Receive Date: 20150917
  Receipt Date: 20150917
  Transmission Date: 20151125
  Serious: Yes (Hospitalization, Other)
  Sender: FDA-Public Use
  Company Number: US-GILEAD-2015-0164446

PATIENT
  Age: 46 Year
  Sex: Female
  Weight: 63 kg

DRUGS (4)
  1. AMBRISENTAN [Suspect]
     Active Substance: AMBRISENTAN
     Indication: PULMONARY ARTERIAL HYPERTENSION
     Dosage: 5 MG, QD
     Route: 048
     Dates: start: 2012
  2. AMLODIPINE [Concomitant]
     Active Substance: AMLODIPINE BESYLATE
     Indication: PULMONARY HYPERTENSION
     Dosage: 5 MG, UNK
     Route: 048
     Dates: start: 201507
  3. REVATIO [Suspect]
     Active Substance: SILDENAFIL CITRATE
     Indication: PULMONARY ARTERIAL HYPERTENSION
     Dosage: 20 MG, TID
     Route: 048
     Dates: start: 20130101, end: 20150701
  4. NICOTINE. [Concomitant]
     Active Substance: NICOTINE
     Dosage: 11 MG, QD

REACTIONS (10)
  - Hypoaesthesia [Unknown]
  - Myelitis transverse [Recovered/Resolved]
  - Balance disorder [Unknown]
  - Dyspnoea [Unknown]
  - Asthenia [Recovering/Resolving]
  - Anxiety [Unknown]
  - Visual acuity reduced [Unknown]
  - Paraesthesia [Not Recovered/Not Resolved]
  - Gait disturbance [Unknown]
  - Incontinence [Recovered/Resolved]

NARRATIVE: CASE EVENT DATE: 201506
